FAERS Safety Report 5217091-0 (Version None)
Quarter: 2007Q1

REPORT INFORMATION
  Report Type: 
  Country: None (occurrence: None)
  Receive Date: 20070124
  Receipt Date: 20070111
  Transmission Date: 20070707
  Serious: Yes (Hospitalization)
  Sender: FDA-Public Use
  Company Number: US-BRISTOL-MYERS SQUIBB COMPANY-13642103

PATIENT
  Age: 64 Year
  Sex: Female

DRUGS (4)
  1. PRAVACHOL [Suspect]
  2. LIPITOR [Interacting]
  3. NORMODYNE [Interacting]
  4. PREMARIN [Interacting]

REACTIONS (4)
  - CEREBROVASCULAR ACCIDENT [None]
  - DRUG INTERACTION [None]
  - PAIN IN EXTREMITY [None]
  - PRECEREBRAL ARTERY OCCLUSION [None]
